FAERS Safety Report 10189368 (Version 1)
Quarter: 2014Q2

REPORT INFORMATION
  Report Type: Spontaneous
  Country: GB (occurrence: GB)
  Receive Date: 20140522
  Receipt Date: 20140522
  Transmission Date: 20141212
  Serious: Yes (Death, Other)
  Sender: FDA-Public Use
  Company Number: GB-TEVA-481942ISR

PATIENT
  Age: 83 Year
  Sex: Female
  Weight: 53 kg

DRUGS (8)
  1. AMOXICILLIN W/CLAVULANIC ACID [Suspect]
     Indication: PNEUMONIA
     Route: 042
     Dates: start: 20130831, end: 20130901
  2. ALENDRONATE SODIUM [Concomitant]
  3. BISOPROLOL [Concomitant]
  4. CLOPIDOGREL [Concomitant]
  5. FUROSEMIDE [Concomitant]
  6. METFORMIN [Concomitant]
  7. PRAVASTATIN [Concomitant]
  8. QUININE [Concomitant]

REACTIONS (3)
  - Cardiac arrest [Fatal]
  - Circulatory collapse [Not Recovered/Not Resolved]
  - Drug prescribing error [Unknown]
